FAERS Safety Report 20315086 (Version 5)
Quarter: 2023Q2

REPORT INFORMATION
  Report Type: Spontaneous
  Country: US (occurrence: US)
  Receive Date: 20220110
  Receipt Date: 20230421
  Transmission Date: 20230721
  Serious: Yes (Death, Hospitalization, Other)
  Sender: FDA-Public Use
  Company Number: US-PFIZER INC-202101881222

PATIENT
  Age: 71 Year
  Sex: Male
  Weight: 101.15 kg

DRUGS (4)
  1. VYNDAMAX [Suspect]
     Active Substance: TAFAMIDIS
     Indication: Cardiac amyloidosis
     Dosage: 61 MG, 1X/DAY
     Route: 048
     Dates: start: 2021
  2. VYNDAMAX [Suspect]
     Active Substance: TAFAMIDIS
     Indication: Cardiac failure congestive
  3. VYNDAMAX [Suspect]
     Active Substance: TAFAMIDIS
     Indication: Carpal tunnel syndrome
  4. VYNDAMAX [Suspect]
     Active Substance: TAFAMIDIS
     Indication: Amyloidosis

REACTIONS (32)
  - Death [Fatal]
  - Prostate cancer [Unknown]
  - Cardiac failure congestive [Unknown]
  - Left ventricular failure [Unknown]
  - Fall [Unknown]
  - Atrial fibrillation [Unknown]
  - Chronic kidney disease [Unknown]
  - Dilated cardiomyopathy [Unknown]
  - Diabetes mellitus [Unknown]
  - Diverticulitis [Unknown]
  - Erectile dysfunction [Unknown]
  - Mitral valve incompetence [Unknown]
  - Neuropathy peripheral [Unknown]
  - Lumbar spinal stenosis [Unknown]
  - Abdominal pain [Unknown]
  - Sciatica [Unknown]
  - Coccydynia [Unknown]
  - Oedema peripheral [Unknown]
  - Benign prostatic hyperplasia [Unknown]
  - Pain [Unknown]
  - Depression [Unknown]
  - Gait disturbance [Unknown]
  - Gout [Unknown]
  - Hypertension [Unknown]
  - Skin laceration [Unknown]
  - Back pain [Unknown]
  - Lumbosacral radiculopathy [Unknown]
  - Obstructive sleep apnoea syndrome [Unknown]
  - Physical deconditioning [Unknown]
  - Vitamin D deficiency [Unknown]
  - Muscular weakness [Unknown]
  - Weight decreased [Unknown]

NARRATIVE: CASE EVENT DATE: 20221127
